FAERS Safety Report 21089051 (Version 1)
Quarter: 2022Q3

REPORT INFORMATION
  Report Type: Other
  Country: None (occurrence: US)
  Receive Date: 20220715
  Receipt Date: 20220715
  Transmission Date: 20221027
  Serious: Yes (Other)
  Sender: FDA-Public Use
  Company Number: US-B.Braun Medical Inc.-2130918

PATIENT
  Age: 22 Year
  Sex: Female

DRUGS (1)
  1. MANNITOL [Suspect]
     Active Substance: MANNITOL

REACTIONS (1)
  - Drug ineffective [Unknown]
